FAERS Safety Report 7943917-3 (Version None)
Quarter: 2011Q4

REPORT INFORMATION
  Report Type: 
  Country: None (occurrence: None)
  Receive Date: 20111128
  Receipt Date: 20111122
  Transmission Date: 20120403
  Serious: Yes (Hospitalization)
  Sender: FDA-Public Use
  Company Number: DK-PFIZER INC-2011286256

PATIENT
  Age: 61 Year
  Sex: Male
  Weight: 52 kg

DRUGS (18)
  1. DOXORUBICIN HCL [Suspect]
     Dosage: 85 MG, UNK
     Route: 042
     Dates: start: 20110803
  2. DOXORUBICIN HCL [Suspect]
     Dosage: 85 MG, UNK
     Route: 042
     Dates: start: 20110818
  3. NEUPOGEN [Suspect]
     Dosage: 6 MG, UNK
     Route: 058
     Dates: start: 20110819
  4. CYCLOPHOSPHAMIDE [Suspect]
     Indication: DIFFUSE LARGE B-CELL LYMPHOMA
     Dosage: 1275 MG, UNK
     Route: 042
     Dates: start: 20110718
  5. CYCLOPHOSPHAMIDE [Suspect]
     Dosage: 1275 MG, UNK
     Route: 042
     Dates: start: 20110803
  6. PREDNISONE [Suspect]
     Dosage: 100 MG, UNK
     Route: 048
     Dates: start: 20110803
  7. VINCRISTINE SULFATE [Suspect]
     Dosage: 2 MG, UNK
     Route: 042
     Dates: start: 20110803
  8. NEUPOGEN [Suspect]
     Dosage: 6 MG, UNK
     Route: 058
     Dates: start: 20110804
  9. RITUXIMAB [Suspect]
     Dosage: 650 MG, UNK
     Route: 042
     Dates: start: 20110803
  10. RITUXIMAB [Suspect]
     Dosage: 650 MG, UNK
     Route: 042
     Dates: start: 20110818
  11. PREDNISONE [Suspect]
     Dosage: 100 MG, UNK
     Route: 048
     Dates: start: 20110818
  12. VINCRISTINE SULFATE [Suspect]
     Indication: DIFFUSE LARGE B-CELL LYMPHOMA
     Dosage: 2 MG, UNK
     Route: 042
     Dates: start: 20110718
  13. VINCRISTINE SULFATE [Suspect]
     Dosage: 2 MG, UNK
     Route: 042
     Dates: start: 20110818
  14. RITUXIMAB [Suspect]
     Indication: DIFFUSE LARGE B-CELL LYMPHOMA
     Dosage: 650 MG, UNK
     Route: 042
     Dates: start: 20110718
  15. PREDNISONE [Suspect]
     Indication: DIFFUSE LARGE B-CELL LYMPHOMA
     Dosage: 100 MG, UNK
     Route: 048
     Dates: start: 20110718
  16. DOXORUBICIN HCL [Suspect]
     Indication: DIFFUSE LARGE B-CELL LYMPHOMA
     Dosage: 85 MG, UNK
     Route: 042
     Dates: start: 20110718
  17. NEUPOGEN [Suspect]
     Indication: DIFFUSE LARGE B-CELL LYMPHOMA
     Dosage: 6 MG, UNK
     Route: 058
     Dates: start: 20110720
  18. CYCLOPHOSPHAMIDE [Suspect]
     Dosage: 1275 MG, UNK
     Route: 042
     Dates: start: 20110818

REACTIONS (4)
  - WEIGHT DECREASED [None]
  - DIARRHOEA [None]
  - STOMATITIS [None]
  - FEBRILE NEUTROPENIA [None]
